FAERS Safety Report 5739069-0 (Version None)
Quarter: 2008Q2

REPORT INFORMATION
  Report Type: 
  Country: None (occurrence: None)
  Receive Date: 20080515
  Receipt Date: 20080512
  Transmission Date: 20081010
  Serious: Yes (Life-Threatening)
  Sender: FDA-Public Use
  Company Number: JP-ASTRAZENECA-2008AP03177

PATIENT
  Age: 82 Year
  Sex: Male
  Weight: 58 kg

DRUGS (15)
  1. MEROPENEM [Suspect]
     Indication: BRONCHITIS
     Route: 042
     Dates: start: 20071204, end: 20071206
  2. DEPAKEN [Concomitant]
     Indication: EPILEPSY
     Dates: start: 20071115
  3. NICHISTATE [Concomitant]
     Indication: CEREBRAL INFARCTION
     Dates: start: 20071115
  4. LANIRAPID [Concomitant]
     Indication: HYPERTENSION
     Dates: start: 20071115
  5. EXEGRAN [Concomitant]
     Indication: EPILEPSY
     Dates: start: 20071115
  6. WARFARIN SODIUM [Concomitant]
     Indication: ATRIAL FIBRILLATION
     Dates: start: 20071115
  7. MIYA-BM [Concomitant]
     Indication: DIARRHOEA
     Dates: start: 20071115
  8. TAZOCIN [Concomitant]
     Indication: PYELONEPHRITIS ACUTE
     Route: 042
     Dates: start: 20071115, end: 20071121
  9. FLUMARIN [Concomitant]
     Indication: PYELONEPHRITIS ACUTE
     Route: 042
     Dates: start: 20071122, end: 20071128
  10. CEFMETAZON [Concomitant]
     Indication: PYELONEPHRITIS ACUTE
     Route: 042
     Dates: start: 20071129, end: 20071204
  11. CEFMETAZON [Concomitant]
     Indication: BRONCHITIS
     Route: 042
     Dates: start: 20071129, end: 20071204
  12. CEFMETAZON [Concomitant]
     Route: 042
     Dates: start: 20071213, end: 20071219
  13. CEFMETAZON [Concomitant]
     Route: 042
     Dates: start: 20071213, end: 20071219
  14. HOKUNALIN [Concomitant]
     Indication: BRONCHITIS
     Route: 062
     Dates: start: 20071201
  15. CEFAMEZIN [Concomitant]
     Indication: BRONCHITIS
     Route: 042
     Dates: start: 20071206, end: 20071212

REACTIONS (1)
  - HEPATIC FUNCTION ABNORMAL [None]
